FAERS Safety Report 8720750 (Version 5)
Quarter: 2013Q3

REPORT INFORMATION
  Report Type: Report from Study
  Country: BE (occurrence: BE)
  Receive Date: 20120813
  Receipt Date: 20130806
  Transmission Date: 20140515
  Serious: Yes (Death, Hospitalization, Other)
  Sender: FDA-Public Use
  Company Number: BE-ABBOTT-12P-013-0965744-00

PATIENT
  Age: 80 Year
  Sex: Female
  Weight: 55.9 kg

DRUGS (16)
  1. HUMIRA 40 MG/ 0.8 ML PRE-FILLED SYRINGE [Suspect]
     Indication: RHEUMATOID ARTHRITIS
     Dates: start: 20101020, end: 20120210
  2. HUMIRA 40 MG/ 0.8 ML PRE-FILLED SYRINGE [Suspect]
     Dates: start: 20120220, end: 20120410
  3. AMLODIPINE [Concomitant]
     Indication: HYPERTENSION
     Dates: start: 20120210
  4. SELOZOK [Concomitant]
     Indication: HYPERTENSION
  5. ESCITALOPRAM [Concomitant]
     Indication: PRODUCT USED FOR UNKNOWN INDICATION
  6. CALCIUM CARBONATE/COLECALCIFEROL [Concomitant]
     Indication: MINERAL SUPPLEMENTATION
     Dosage: 1000/880 MG DAILY
     Dates: start: 20120106, end: 20120316
  7. MACROGOL [Concomitant]
     Indication: LAXATIVE SUPPORTIVE CARE
     Dates: start: 20120106
  8. METHYLPREDNISOLON [Concomitant]
     Indication: RHEUMATOID ARTHRITIS
     Dosage: 4 MG AND 0.5 TABLET OF 16 MG
     Dates: start: 201104
  9. PANTOPRAZOL [Concomitant]
     Indication: GASTRIC DISORDER
  10. PANTOPRAZOL [Concomitant]
     Indication: PROPHYLAXIS
  11. METOPROLOL SUCCINATE [Concomitant]
     Indication: HYPERTENSION
     Dates: start: 20120212
  12. ESCITALOGRAM [Concomitant]
     Indication: ANTIDEPRESSANT THERAPY
     Dates: start: 20120106
  13. ESCITALOGRAM [Concomitant]
     Dates: start: 20120106, end: 20120316
  14. ASAFLOW [Concomitant]
     Indication: ANTICOAGULANT THERAPY
     Dates: start: 20120212
  15. MIRTAZAPINE [Concomitant]
     Indication: ANTIDEPRESSANT THERAPY
     Dates: start: 20120227, end: 20120316
  16. NADROPARINE [Concomitant]
     Indication: THROMBOSIS PROPHYLAXIS

REACTIONS (26)
  - General physical health deterioration [Recovered/Resolved]
  - Decreased appetite [Recovered/Resolved]
  - Mobility decreased [Recovered/Resolved]
  - Peripheral arterial occlusive disease [Unknown]
  - Tendon calcification [Unknown]
  - Cholelithiasis [Unknown]
  - Cholelithiasis [Unknown]
  - Aortic valve stenosis [Recovering/Resolving]
  - Aortic valve incompetence [Fatal]
  - Syncope [Recovering/Resolving]
  - Syncope [Recovering/Resolving]
  - Infection [Recovering/Resolving]
  - Septic shock [Recovering/Resolving]
  - Aortic valve stenosis [Fatal]
  - Aortic valve incompetence [Fatal]
  - Presyncope [Fatal]
  - Myocardial ischaemia [Fatal]
  - Respiratory failure [Fatal]
  - Pulmonary oedema [Fatal]
  - Lung infection [Fatal]
  - Escherichia urinary tract infection [Recovering/Resolving]
  - Immune thrombocytopenic purpura [Unknown]
  - Angiogram peripheral abnormal [Unknown]
  - Femoral artery occlusion [Unknown]
  - Radiculopathy [Unknown]
  - Decreased appetite [Unknown]
